FAERS Safety Report 5098409-9 (Version None)
Quarter: 2006Q3

REPORT INFORMATION
  Report Type: 
  Country: None (occurrence: None)
  Receive Date: 20060907
  Receipt Date: 20060405
  Transmission Date: 20061208
  Serious: Yes (Hospitalization)
  Sender: FDA-Public Use
  Company Number: US-ROCHE-443542

PATIENT
  Age: 14 Year
  Sex: Female
  Weight: 59 kg

DRUGS (3)
  1. ACCUTANE [Suspect]
     Dosage: 20 MG EVERY MORNING AND 40 MG EVERY EVENING.
     Route: 048
     Dates: start: 19961027, end: 19970327
  2. ACCUTANE [Suspect]
     Route: 048
     Dates: start: 19970328, end: 19970807
  3. OVCON-35 [Concomitant]
     Indication: ORAL CONTRACEPTION
     Route: 048

REACTIONS (80)
  - ACNE [None]
  - ANAEMIA [None]
  - ANXIETY [None]
  - ARTHRALGIA [None]
  - ARTHRITIS [None]
  - ATTENTION DEFICIT/HYPERACTIVITY DISORDER [None]
  - BACK PAIN [None]
  - CALCULUS URINARY [None]
  - CANDIDIASIS [None]
  - CHROMATURIA [None]
  - COLITIS ULCERATIVE [None]
  - DEPRESSION [None]
  - DISTURBANCE IN ATTENTION [None]
  - DIZZINESS [None]
  - DRY EYE [None]
  - DRY SKIN [None]
  - DYSPEPSIA [None]
  - EAR INFECTION [None]
  - ERYTHEMA NODOSUM [None]
  - EYE DISORDER [None]
  - FALL [None]
  - FATIGUE [None]
  - FLANK PAIN [None]
  - FRACTURE [None]
  - FUNGAL INFECTION [None]
  - GAIT DISTURBANCE [None]
  - GASTROOESOPHAGEAL REFLUX DISEASE [None]
  - HAEMATOCRIT DECREASED [None]
  - HAEMOGLOBIN DECREASED [None]
  - HEADACHE [None]
  - HERPES SIMPLEX [None]
  - ILEITIS [None]
  - INFLAMMATORY BOWEL DISEASE [None]
  - INSOMNIA [None]
  - IRITIS [None]
  - LIP DRY [None]
  - LUMBAR VERTEBRAL FRACTURE [None]
  - MALAISE [None]
  - MEDICATION RESIDUE [None]
  - MELANOCYTIC NAEVUS [None]
  - MENSTRUATION IRREGULAR [None]
  - MENTAL DISORDER [None]
  - MIGRAINE [None]
  - MILIA [None]
  - MOUTH ULCERATION [None]
  - MUCOUS STOOLS [None]
  - MUSCULOSKELETAL STIFFNESS [None]
  - NASAL DRYNESS [None]
  - NAUSEA [None]
  - NEPHROLITHIASIS [None]
  - NIGHT BLINDNESS [None]
  - OEDEMA PERIPHERAL [None]
  - PARVOVIRUS INFECTION [None]
  - PETECHIAE [None]
  - PHARYNGITIS [None]
  - PROCTITIS [None]
  - PRURITUS [None]
  - PYREXIA [None]
  - RECTAL HAEMORRHAGE [None]
  - RED BLOOD CELL COUNT DECREASED [None]
  - RED BLOOD CELL SEDIMENTATION RATE INCREASED [None]
  - RENAL COLIC [None]
  - SCAR [None]
  - SOMNOLENCE [None]
  - SPINAL FRACTURE [None]
  - STAPHYLOCOCCAL INFECTION [None]
  - STOMACH DISCOMFORT [None]
  - SUICIDAL IDEATION [None]
  - SUPRAPUBIC PAIN [None]
  - SYNCOPE [None]
  - TONSILLAR HYPERTROPHY [None]
  - ULCER [None]
  - ULCERATIVE KERATITIS [None]
  - UPPER RESPIRATORY TRACT INFECTION [None]
  - URINARY TRACT INFECTION [None]
  - URINE ODOUR ABNORMAL [None]
  - VAGINAL INFECTION [None]
  - VITREOUS FLOATERS [None]
  - VOMITING [None]
  - WEIGHT DECREASED [None]
